FAERS Safety Report 4703418-2 (Version None)
Quarter: 2005Q2

REPORT INFORMATION
  Report Type: 
  Country: None (occurrence: None)
  Receive Date: 20050629
  Receipt Date: 20050610
  Transmission Date: 20051028
  Serious: Yes (Death, Hospitalization)
  Sender: FDA-Public Use
  Company Number: 2005PL000048

PATIENT
  Age: 60 Year
  Sex: Male

DRUGS (3)
  1. ALLOPURINOL [Suspect]
     Indication: HYPERURICAEMIA
     Dosage: PO
     Route: 048
  2. MEROPENEM [Concomitant]
  3. VANCOMYCIN [Concomitant]

REACTIONS (20)
  - BLOOD PRESSURE DECREASED [None]
  - COMA [None]
  - DEPRESSED LEVEL OF CONSCIOUSNESS [None]
  - DERMATITIS [None]
  - DIALYSIS [None]
  - DRUG HYPERSENSITIVITY [None]
  - ERYTHEMA MULTIFORME [None]
  - GENERALISED OEDEMA [None]
  - HAEMOGLOBIN DECREASED [None]
  - HEPATOCELLULAR DAMAGE [None]
  - JAUNDICE [None]
  - LIVER DISORDER [None]
  - PLATELET COUNT DECREASED [None]
  - PURPURA [None]
  - RASH [None]
  - RENAL FAILURE [None]
  - RESPIRATORY RATE INCREASED [None]
  - SEPSIS [None]
  - URINARY RETENTION [None]
  - VANISHING BILE DUCT SYNDROME [None]
